FAERS Safety Report 9174818 (Version 2)
Quarter: 2013Q4

REPORT INFORMATION
  Report Type: Spontaneous
  Country: US (occurrence: US)
  Receive Date: 20130320
  Receipt Date: 20131209
  Transmission Date: 20140711
  Serious: No
  Sender: FDA-Public Use
  Company Number: US-ASTRAZENECA-2013SE13601

PATIENT
  Age: 79 Year
  Sex: Female
  Weight: 86.2 kg

DRUGS (11)
  1. LISINOPRIL [Suspect]
     Indication: BLOOD PRESSURE ABNORMAL
     Route: 048
  2. SYMBICORT [Suspect]
     Indication: DYSPNOEA
     Dosage: 160/4.5 2 PUFFS BID
     Route: 055
     Dates: start: 2009
  3. SYMBICORT [Suspect]
     Indication: CHRONIC OBSTRUCTIVE PULMONARY DISEASE
     Dosage: 160/4.5 2 PUFFS BID
     Route: 055
     Dates: start: 2009
  4. SYMBICORT [Suspect]
     Indication: DYSPNOEA
     Dosage: 160/4.5 2 PUFFS BID
     Route: 055
     Dates: start: 2010
  5. SYMBICORT [Suspect]
     Indication: CHRONIC OBSTRUCTIVE PULMONARY DISEASE
     Dosage: 160/4.5 2 PUFFS BID
     Route: 055
     Dates: start: 2010
  6. VENTOLIN [Concomitant]
     Dosage: PRN
     Route: 055
     Dates: start: 2010
  7. TUDORZA PRESSAIR [Concomitant]
     Route: 055
     Dates: start: 2013
  8. FLORADIL [Concomitant]
  9. ARCAPTICA [Concomitant]
  10. METFORMIN [Concomitant]
     Indication: DIABETES MELLITUS
  11. AMLODIPINE [Concomitant]
     Indication: BLOOD PRESSURE ABNORMAL

REACTIONS (4)
  - Dysphonia [Not Recovered/Not Resolved]
  - Glucose tolerance impaired [Unknown]
  - Off label use [Unknown]
  - Intentional drug misuse [Unknown]
